FAERS Safety Report 10751855 (Version 2)
Quarter: 2015Q1

REPORT INFORMATION
  Report Type: Spontaneous
  Country: IT (occurrence: IT)
  Receive Date: 20150130
  Receipt Date: 20150202
  Transmission Date: 20150721
  Serious: Yes (Hospitalization)
  Sender: FDA-Public Use
  Company Number: IT-PFIZER INC-2015018669

PATIENT
  Age: 53 Year
  Sex: Female

DRUGS (6)
  1. PAROXETINE [Suspect]
     Active Substance: PAROXETINE\PAROXETINE HYDROCHLORIDE
     Dosage: 280 MG, TOTAL
     Route: 048
     Dates: start: 20130701, end: 20130701
  2. ESCITALOPRAM ALTER [Concomitant]
     Dosage: 10 MG, UNK
  3. LEXOTAN [Suspect]
     Active Substance: BROMAZEPAM
     Dosage: 15 ML, TOTAL
     Route: 048
     Dates: start: 20130701, end: 20130701
  4. NUROFEN [Concomitant]
     Active Substance: IBUPROFEN
     Dosage: UNK
  5. XANAX [Suspect]
     Active Substance: ALPRAZOLAM
     Dosage: 20 ML, TOTAL
     Route: 048
     Dates: start: 20130701, end: 20130701
  6. ENANTYUM [Concomitant]
     Active Substance: DEXKETOPROFEN TROMETAMOL

REACTIONS (4)
  - Toxicity to various agents [Recovered/Resolved]
  - Intentional overdose [Recovered/Resolved]
  - Bradyphrenia [Recovered/Resolved]
  - Drug abuse [Recovered/Resolved]

NARRATIVE: CASE EVENT DATE: 20130701
